FAERS Safety Report 25304294 (Version 1)
Quarter: 2025Q2

REPORT INFORMATION
  Report Type: Spontaneous
  Country: US (occurrence: US)
  Receive Date: 20250513
  Receipt Date: 20250513
  Transmission Date: 20250716
  Serious: Yes (Other)
  Sender: AUROBINDO
  Company Number: US-AUROBINDO-AUR-APL-2025-023637

PATIENT
  Age: 72 Year
  Sex: Female

DRUGS (1)
  1. TERBINAFINE [Suspect]
     Active Substance: TERBINAFINE
     Indication: Onychomycosis
     Route: 065

REACTIONS (4)
  - Drug-induced liver injury [Unknown]
  - Rhabdomyolysis [Unknown]
  - Acute kidney injury [Unknown]
  - Hepatic failure [Unknown]
